FAERS Safety Report 5680823-1 (Version None)
Quarter: 2008Q1

REPORT INFORMATION
  Report Type: 
  Country: None (occurrence: None)
  Receive Date: 20080325
  Receipt Date: 20080319
  Transmission Date: 20080703
  Serious: Yes (Other)
  Sender: FDA-Public Use
  Company Number: 2008SP000483

PATIENT
  Age: 6 Year
  Sex: Male
  Weight: 20.8655 kg

DRUGS (4)
  1. NASONEX [Suspect]
     Indication: RHINITIS
     Dosage: 50 MCG, BID, NAS
     Route: 045
     Dates: start: 20070612, end: 20071201
  2. SINGULAIR [Concomitant]
  3. XOPENEX HFA [Concomitant]
  4. TOPICORT [Concomitant]

REACTIONS (7)
  - ABNORMAL BEHAVIOUR [None]
  - ANXIETY [None]
  - DEPRESSION [None]
  - EAR INFECTION [None]
  - HYPOCHONDRIASIS [None]
  - SUICIDAL IDEATION [None]
  - WITHDRAWAL SYNDROME [None]
